FAERS Safety Report 23801052 (Version 1)
Quarter: 2024Q2

REPORT INFORMATION
  Report Type: Spontaneous
  Country: CN (occurrence: CN)
  Receive Date: 20240430
  Receipt Date: 20240430
  Transmission Date: 20240716
  Serious: Yes (Other)
  Sender: FDA-Public Use
  Company Number: CN-009507513-2404CHN011945

PATIENT
  Age: 68 Year
  Sex: Male
  Weight: 56 kg

DRUGS (6)
  1. CILASTATIN SODIUM\IMIPENEM [Suspect]
     Active Substance: CILASTATIN SODIUM\IMIPENEM
     Indication: Anti-infective therapy
     Dosage: 500 MG, Q6H, IV DRIP
     Route: 041
     Dates: start: 20240316, end: 20240325
  2. CILASTATIN SODIUM\IMIPENEM [Suspect]
     Active Substance: CILASTATIN SODIUM\IMIPENEM
     Indication: Myelodysplastic syndrome
  3. VANCOCIN [Concomitant]
     Active Substance: VANCOMYCIN HYDROCHLORIDE
     Indication: Anti-infective therapy
     Dosage: 1 G, Q12H, IV DRIP
     Route: 041
     Dates: start: 20240316, end: 20240325
  4. VANCOCIN [Concomitant]
     Active Substance: VANCOMYCIN HYDROCHLORIDE
     Indication: Myelodysplastic syndrome
  5. SODIUM CHLORIDE [Concomitant]
     Active Substance: SODIUM CHLORIDE
     Dosage: 100 ML, Q6H, IV DRIP
     Route: 041
     Dates: start: 20240316
  6. SODIUM CHLORIDE [Concomitant]
     Active Substance: SODIUM CHLORIDE
     Dosage: 250 ML, Q12H, IV DRIP
     Route: 041
     Dates: start: 20240316

REACTIONS (7)
  - Suicidal ideation [Unknown]
  - Disorganised speech [Recovering/Resolving]
  - Depressed mood [Recovering/Resolving]
  - Affect lability [Recovering/Resolving]
  - Anger [Unknown]
  - Aggression [Unknown]
  - Product use in unapproved indication [Unknown]

NARRATIVE: CASE EVENT DATE: 20240316
